FAERS Safety Report 7789479-5 (Version None)
Quarter: 2011Q3

REPORT INFORMATION
  Report Type: 
  Country: None (occurrence: None)
  Receive Date: 20110930
  Receipt Date: 20110921
  Transmission Date: 20111222
  Serious: Yes (Other)
  Sender: FDA-Public Use
  Company Number: BR-JNJFOC-20110907085

PATIENT
  Age: 20 Year
  Sex: Male
  Weight: 75 kg

DRUGS (9)
  1. ACETAMINOPHEN [Suspect]
     Indication: PAIN
     Route: 065
     Dates: start: 20110829
  2. HALDOL [Suspect]
     Indication: IRRITABILITY
     Dosage: 5 MG
     Route: 065
     Dates: start: 20110822, end: 20110911
  3. TRAMADOL HYDROCHLORIDE [Suspect]
     Indication: PRODUCT USED FOR UNKNOWN INDICATION
     Route: 065
     Dates: start: 20110815
  4. ANTIBIOTICS [Concomitant]
     Indication: PRODUCT USED FOR UNKNOWN INDICATION
     Route: 065
     Dates: start: 20110815
  5. OMEPRAZOLE [Concomitant]
     Indication: PRODUCT USED FOR UNKNOWN INDICATION
     Route: 065
     Dates: start: 20110815
  6. ACETAMINOPHEN [Suspect]
     Route: 065
  7. DIPYRONE TAB [Suspect]
     Indication: PAIN
     Route: 065
     Dates: start: 20110829
  8. DIAZEPAM [Concomitant]
     Indication: PRODUCT USED FOR UNKNOWN INDICATION
     Route: 065
  9. MORPHINE [Concomitant]
     Indication: PRODUCT USED FOR UNKNOWN INDICATION
     Route: 065
     Dates: start: 20110804

REACTIONS (9)
  - TACHYCARDIA [None]
  - TREMOR [None]
  - PYREXIA [None]
  - HALLUCINATION [None]
  - HYPERHIDROSIS [None]
  - EXOPHTHALMOS [None]
  - DYSPNOEA [None]
  - INSOMNIA [None]
  - MUSCLE RIGIDITY [None]
